FAERS Safety Report 4558704-6 (Version None)
Quarter: 2005Q1

REPORT INFORMATION
  Report Type: 
  Country: None (occurrence: None)
  Receive Date: 20050119
  Receipt Date: 20050104
  Transmission Date: 20050727
  Serious: Yes (Hospitalization)
  Sender: FDA-Public Use
  Company Number: CIP04001649

PATIENT
  Age: 71 Year
  Sex: Male

DRUGS (8)
  1. ACTONEL [Suspect]
     Indication: OSTEOPOROSIS
     Dosage: SEE IMAGE
     Route: 048
     Dates: start: 20040406, end: 20040413
  2. ACTONEL [Suspect]
     Indication: OSTEOPOROSIS
     Dosage: SEE IMAGE
     Route: 048
     Dates: start: 20040520, end: 20040527
  3. ACTONEL [Suspect]
     Indication: OSTEOPOROSIS
     Dosage: SEE IMAGE
     Route: 048
     Dates: start: 20040707, end: 20040722
  4. ACTONEL [Suspect]
     Indication: OSTEOPOROSIS
     Dosage: SEE IMAGE
     Route: 048
     Dates: start: 20040722
  5. IMURAN [Suspect]
     Indication: VASCULITIS
     Dosage: SEE IMAGE
     Route: 048
  6. PREDNISONE [Concomitant]
  7. VERAPAMIL [Concomitant]
  8. ASPIRIN [Concomitant]

REACTIONS (13)
  - ABDOMINAL PAIN UPPER [None]
  - ANTINUCLEAR ANTIBODY POSITIVE [None]
  - BONE PAIN [None]
  - CHILLS [None]
  - CUTANEOUS VASCULITIS [None]
  - DERMATITIS HERPETIFORMIS [None]
  - DYSPNOEA [None]
  - EPISTAXIS [None]
  - HAEMATOCRIT DECREASED [None]
  - HYPERHIDROSIS [None]
  - INFLUENZA LIKE ILLNESS [None]
  - PLATELET COUNT DECREASED [None]
  - RENAL PAIN [None]
